FAERS Safety Report 4851728-0 (Version None)
Quarter: 2005Q4

REPORT INFORMATION
  Report Type: 
  Country: None (occurrence: None)
  Receive Date: 20051213
  Receipt Date: 20051109
  Transmission Date: 20060501
  Serious: Yes (Death, Hospitalization)
  Sender: FDA-Public Use
  Company Number: US-KINGPHARMUSA00001-K200501454

PATIENT
  Age: 75 Year
  Sex: Male

DRUGS (17)
  1. ALTACE [Suspect]
     Indication: ESSENTIAL HYPERTENSION
     Dosage: 5 MG, QD
     Route: 048
     Dates: start: 20050601, end: 20050928
  2. ALTACE [Suspect]
     Dosage: 5 MG, QD
     Route: 048
     Dates: start: 20050901
  3. SELOKEN [Suspect]
     Indication: ATRIAL FIBRILLATION
     Dosage: 50 MG, BID
     Route: 048
     Dates: start: 20050101, end: 20050928
  4. VFEND [Suspect]
     Indication: CANDIDIASIS
     Dosage: 400 MG, QD
     Route: 048
     Dates: start: 20050818, end: 20050922
  5. DIFFU K [Suspect]
     Dosage: 1 CAPSULE, QD
     Route: 048
     Dates: start: 20050914, end: 20050914
  6. DIFFU K [Suspect]
     Dosage: 6 CAPSULES, QD
     Route: 048
     Dates: start: 20050916, end: 20050916
  7. DIFFU K [Suspect]
     Dosage: 3 CAPSULES, QD
     Route: 048
     Dates: start: 20050917, end: 20050918
  8. AMLOR [Suspect]
     Indication: ESSENTIAL HYPERTENSION
     Dosage: 5 MG, BID
     Route: 048
     Dates: start: 20050901, end: 20050928
  9. COUMADIN [Concomitant]
     Dosage: 2.5 MG, QD
     Route: 048
     Dates: end: 20050928
  10. ZOCOR [Concomitant]
     Dates: end: 20050928
  11. PREVISCAN [Concomitant]
     Dates: end: 20050831
  12. ZOXON [Concomitant]
     Dates: end: 20050928
  13. TARDYFERON [Concomitant]
     Dates: end: 20050928
  14. LASILIX [Concomitant]
     Dates: end: 20050928
  15. INEXIUM (ESOMEPRAZOLE) [Suspect]
     Dosage: 40 MG, QD
     Route: 048
     Dates: end: 20050928
  16. MAG 2 [Concomitant]
     Dosage: 6 AMP, QD
     Dates: end: 20050928
  17. CHLORAMBUCIL [Concomitant]
     Dates: end: 20050928

REACTIONS (15)
  - AGITATION [None]
  - ATRIAL FIBRILLATION [None]
  - BLOOD CREATININE INCREASED [None]
  - BLOOD UREA INCREASED [None]
  - CARDIAC ARREST [None]
  - CEREBROVASCULAR ACCIDENT [None]
  - CONFUSIONAL STATE [None]
  - DYSPNOEA [None]
  - ELECTROCARDIOGRAM QRS COMPLEX PROLONGED [None]
  - ENDOCARDITIS CANDIDA [None]
  - HAEMODYNAMIC INSTABILITY [None]
  - OXYGEN SATURATION DECREASED [None]
  - RENAL FAILURE ACUTE [None]
  - RESPIRATORY ARREST [None]
  - TACHYCARDIA [None]
